FAERS Safety Report 25136100 (Version 3)
Quarter: 2025Q4

REPORT INFORMATION
  Report Type: Spontaneous
  Country: US (occurrence: US)
  Receive Date: 20250328
  Receipt Date: 20251230
  Transmission Date: 20260118
  Serious: Yes (Life-Threatening, Hospitalization)
  Sender: PFIZER
  Company Number: US-MLMSERVICE-20250317-PI445917-00132-1

PATIENT
  Age: 27 Year
  Sex: Female

DRUGS (1)
  1. EPINEPHRINE [Suspect]
     Active Substance: EPINEPHRINE
     Dosage: ADMINISTERED AN INTRAMUSCULAR DOSE OF EPINEPHRINE, 1 MG, VIA AN INTRAVENOUS LINE
     Route: 042

REACTIONS (5)
  - Accidental overdose [Recovered/Resolved]
  - Incorrect route of product administration [Recovered/Resolved]
  - Cardiogenic shock [Recovered/Resolved]
  - Arteriospasm coronary [Recovered/Resolved]
  - Off label use [Recovered/Resolved]
